FAERS Safety Report 6981413-0 (Version None)
Quarter: 2010Q3

REPORT INFORMATION
  Report Type: 
  Country: None (occurrence: None)
  Receive Date: 20100914
  Receipt Date: 20100902
  Transmission Date: 20110219
  Serious: Yes (Disabling, Other)
  Sender: FDA-Public Use
  Company Number: AU-WYE-G06300410

PATIENT
  Sex: Male
  Weight: 128 kg

DRUGS (4)
  1. EFFEXOR XR [Suspect]
     Dosage: DOSE INCREASED SLOWLY 150MG IN THE MORNING AND 75MG EVERY AFTERNOON, REDUCED TO 187.5 ON 22-JUN-2010
     Route: 048
     Dates: start: 20100101
  2. KARVEZIDE [Concomitant]
     Indication: HYPERTENSION
     Dosage: 300/25 ONCE DAILY
     Route: 048
     Dates: start: 20090101
  3. CENTRUM [Suspect]
  4. XANAX [Concomitant]
     Indication: ANXIETY
     Dosage: 1 MG FOUR TIMES DAILY
     Route: 048

REACTIONS (12)
  - ACTIVITIES OF DAILY LIVING IMPAIRED [None]
  - AFFECT LABILITY [None]
  - ANXIETY [None]
  - ASTHENIA [None]
  - CONDITION AGGRAVATED [None]
  - CONFUSIONAL STATE [None]
  - DISTURBANCE IN ATTENTION [None]
  - FATIGUE [None]
  - FEELING ABNORMAL [None]
  - HYPERHIDROSIS [None]
  - INSOMNIA [None]
  - PANIC ATTACK [None]
